FAERS Safety Report 7868467-4 (Version None)
Quarter: 2011Q4

REPORT INFORMATION
  Report Type: 
  Country: None (occurrence: None)
  Receive Date: 20111028
  Receipt Date: 20101213
  Transmission Date: 20120403
  Serious: No
  Sender: FDA-Public Use
  Company Number: US-AMGEN-USASP2010008885

PATIENT
  Age: 59 Year
  Sex: Female

DRUGS (18)
  1. FUROSEMIDE [Concomitant]
     Dosage: 20 MG, UNK
     Route: 048
  2. HYDROXYCHLOROQUINE SULFATE [Concomitant]
  3. SIMVASTATIN [Concomitant]
  4. ALBUTEROL [Concomitant]
  5. BENADRYL [Concomitant]
  6. ASPIRIN [Concomitant]
  7. SKELAXIN [Concomitant]
  8. ALPRAZOLAM [Concomitant]
  9. ATENOLOL [Concomitant]
  10. TUMS E-X [Concomitant]
  11. SALSALATE [Concomitant]
  12. ENBREL [Suspect]
     Indication: PRODUCT USED FOR UNKNOWN INDICATION
     Dosage: 50 MG, QWK
     Route: 058
  13. ZOLPIDEM [Concomitant]
     Dosage: 5 MG, UNK
     Route: 048
  14. LISINOPRIL [Concomitant]
  15. LANSOPRAZOLE [Concomitant]
  16. HYDROCODONE BITARTRATE [Concomitant]
  17. METAXALONE [Concomitant]
  18. BUSPIRONE                          /00803202/ [Concomitant]

REACTIONS (1)
  - INJECTION SITE REACTION [None]
